FAERS Safety Report 8494687-4 (Version None)
Quarter: 2012Q3

REPORT INFORMATION
  Report Type: 
  Country: None (occurrence: None)
  Receive Date: 20120709
  Receipt Date: 20120702
  Transmission Date: 20120928
  Serious: Yes (Hospitalization, Other)
  Sender: FDA-Public Use
  Company Number: US-BAYER-200942498NA

PATIENT
  Age: 31 Year
  Sex: Female
  Weight: 86 kg

DRUGS (13)
  1. IBUPROFEN [Concomitant]
     Dosage: UNK UNK, PRN
  2. LEVAQUIN [Concomitant]
  3. ALPRAZOLAM [Concomitant]
     Indication: DEPRESSION
     Dosage: UNK
     Dates: start: 20040101, end: 20070101
  4. EFFEXOR [Concomitant]
  5. YAZ [Suspect]
     Indication: PREMENSTRUAL SYNDROME
  6. RANITIDINE [Concomitant]
     Indication: GASTROOESOPHAGEAL REFLUX DISEASE
     Dosage: 150 MG, BID
     Dates: start: 20071120, end: 20071212
  7. UNASYN [Concomitant]
  8. I.V. SOLUTIONS [Concomitant]
     Route: 042
  9. YAZ [Suspect]
     Indication: ENDOMETRIOSIS
  10. FLAGYL [Concomitant]
  11. DOXYCYCLINE HYCLATE [Concomitant]
  12. YAZ [Suspect]
     Indication: ORAL CONTRACEPTION
     Dates: start: 20070601, end: 20071201
  13. EXCEDRIN (MIGRAINE) [Concomitant]
     Dosage: UNK UNK, OW
     Route: 048
     Dates: start: 20071121, end: 20071128

REACTIONS (14)
  - PULMONARY EMBOLISM [None]
  - DEPRESSION [None]
  - ABDOMINAL DISTENSION [None]
  - CHOLECYSTITIS CHRONIC [None]
  - ABDOMINAL PAIN UPPER [None]
  - CHOLESTEROSIS [None]
  - DYSPNOEA [None]
  - LETHARGY [None]
  - ANXIETY [None]
  - ASTHENIA [None]
  - CHOLECYSTITIS [None]
  - IRRITABLE BOWEL SYNDROME [None]
  - VOMITING [None]
  - ABDOMINAL PAIN LOWER [None]
